FAERS Safety Report 22614105 (Version 1)
Quarter: 2023Q2

REPORT INFORMATION
  Report Type: Spontaneous
  Country: US (occurrence: US)
  Receive Date: 20230619
  Receipt Date: 20230619
  Transmission Date: 20230721
  Serious: No
  Sender: FDA-Public Use
  Company Number: US-ViiV Healthcare Limited-97156

PATIENT
  Age: 54 Year
  Sex: Male

DRUGS (1)
  1. DOVATO [Suspect]
     Active Substance: DOLUTEGRAVIR SODIUM\LAMIVUDINE
     Indication: Product used for unknown indication
     Dosage: UNK
     Dates: start: 202107

REACTIONS (2)
  - Dysphagia [Unknown]
  - Vomiting [Unknown]

NARRATIVE: CASE EVENT DATE: 20230607
